FAERS Safety Report 5607024-7 (Version None)
Quarter: 2008Q1

REPORT INFORMATION
  Report Type: 
  Country: None (occurrence: None)
  Receive Date: 20080129
  Receipt Date: 20080117
  Transmission Date: 20080703
  Serious: Yes (Other)
  Sender: FDA-Public Use
  Company Number: US-PFIZER INC-2008006230

PATIENT
  Sex: Female
  Weight: 61.818 kg

DRUGS (2)
  1. LYRICA [Suspect]
     Indication: FIBROMYALGIA
     Dates: start: 20070101, end: 20080101
  2. LORTAB [Concomitant]

REACTIONS (13)
  - BEDRIDDEN [None]
  - DIZZINESS [None]
  - FATIGUE [None]
  - HEADACHE [None]
  - INSOMNIA [None]
  - MUSCLE SPASMS [None]
  - NAUSEA [None]
  - PAIN [None]
  - PRESYNCOPE [None]
  - SOMNOLENCE [None]
  - SWELLING [None]
  - TREMOR [None]
  - VISION BLURRED [None]
